FAERS Safety Report 14312096 (Version 1)
Quarter: 2017Q4

REPORT INFORMATION
  Report Type: Spontaneous
  Country: CA (occurrence: CA)
  Receive Date: 20171221
  Receipt Date: 20171221
  Transmission Date: 20180321
  Serious: Yes (Other)
  Sender: FDA-Public Use
  Company Number: CA-ROCHE-2039020

PATIENT
  Sex: Female

DRUGS (7)
  1. LEFLUNOMIDE. [Suspect]
     Active Substance: LEFLUNOMIDE
     Indication: PRODUCT USED FOR UNKNOWN INDICATION
     Route: 065
  2. PREDNISONE. [Concomitant]
     Active Substance: PREDNISONE
  3. ACTEMRA [Suspect]
     Active Substance: TOCILIZUMAB
     Indication: PRODUCT USED FOR UNKNOWN INDICATION
     Route: 065
  4. SULFASALAZINE. [Suspect]
     Active Substance: SULFASALAZINE
     Indication: RHEUMATOID ARTHRITIS
     Route: 048
  5. XELJANZ [Suspect]
     Active Substance: TOFACITINIB CITRATE
     Indication: RHEUMATOID ARTHRITIS
     Dosage: 5MG/BID (2X/DAY)
     Route: 048
     Dates: start: 20160419
  6. METHOTREXATE. [Suspect]
     Active Substance: METHOTREXATE
     Indication: RHEUMATOID ARTHRITIS
     Dosage: 25MG Q UNK,
     Route: 048
     Dates: start: 199502, end: 2015
  7. VICTOZA [Concomitant]
     Active Substance: LIRAGLUTIDE

REACTIONS (7)
  - Drug ineffective [Unknown]
  - Rash [Unknown]
  - Walking aid user [Unknown]
  - Hepatic enzyme increased [Unknown]
  - Osteoarthritis [Unknown]
  - Body mass index increased [Unknown]
  - Arthralgia [Unknown]
